FAERS Safety Report 18924905 (Version 1)
Quarter: 2021Q1

REPORT INFORMATION
  Report Type: Spontaneous
  Country: JP (occurrence: JP)
  Receive Date: 20210222
  Receipt Date: 20210222
  Transmission Date: 20210420
  Serious: Yes (Other)
  Sender: FDA-Public Use
  Company Number: JP-PFIZER INC-2021135525

PATIENT

DRUGS (1)
  1. SOLU?CORTEF [Suspect]
     Active Substance: HYDROCORTISONE SODIUM SUCCINATE
     Indication: GLUCOCORTICOID DEFICIENCY
     Dosage: UNK
     Route: 041

REACTIONS (2)
  - Condition aggravated [Unknown]
  - Hypothermia [Unknown]
